FAERS Safety Report 8782879 (Version 1)
Quarter: 2012Q4

REPORT INFORMATION
  Report Type: 
  Country: PL (occurrence: PL)
  Receive Date: 20120913
  Receipt Date: 20120913
  Transmission Date: 20130627
  Serious: Yes (Hospitalization)
  Sender: FDA-Public Use
  Company Number: PHHY2012PL078328

PATIENT
  Sex: Female

DRUGS (3)
  1. FENTANYL [Suspect]
     Indication: PAIN
     Dosage: 50 ug/day
  2. VENLAFAXINE [Suspect]
     Indication: DEPRESSION
     Dosage: 150 mg/day
  3. METOCLOPRAMIDE [Suspect]
     Indication: PAIN
     Dosage: 30 mg/day

REACTIONS (9)
  - Serotonin syndrome [Unknown]
  - Nausea [Unknown]
  - Vomiting [Unknown]
  - Hyperhidrosis [Unknown]
  - Body temperature increased [Unknown]
  - Hyperreflexia [Unknown]
  - Clonus [Unknown]
  - Tachycardia [Unknown]
  - Blood creatine phosphokinase increased [Unknown]
